FAERS Safety Report 4752407-0 (Version None)
Quarter: 2005Q3

REPORT INFORMATION
  Report Type: 
  Country: None (occurrence: None)
  Receive Date: 20050825
  Receipt Date: 20050818
  Transmission Date: 20060218
  Serious: Yes (Other)
  Sender: FDA-Public Use
  Company Number: PHNU2005DE02918

PATIENT
  Sex: Female

DRUGS (2)
  1. ZOMETA [Suspect]
     Indication: METASTASES TO BONE
     Dosage: 4 MG, QMO
     Dates: start: 20020101
  2. NOVALGIN [Concomitant]
     Route: 065
     Dates: end: 20050701

REACTIONS (4)
  - ASEPTIC NECROSIS BONE [None]
  - DENTAL PROSTHESIS PLACEMENT [None]
  - GINGIVAL BLEEDING [None]
  - GINGIVAL RECESSION [None]
